FAERS Safety Report 8085709-3 (Version None)
Quarter: 2012Q1

REPORT INFORMATION
  Report Type: 
  Country: None (occurrence: None)
  Receive Date: 20120128
  Receipt Date: 20110602
  Transmission Date: 20120608
  Serious: No
  Sender: FDA-Public Use
  Company Number: US-ABBOTT-11P-163-0730037-00

PATIENT
  Age: 85 Year
  Sex: Female

DRUGS (7)
  1. METHOTREXATE [Concomitant]
     Indication: ARTHRITIS
  2. TRAMADOL HCL [Concomitant]
     Indication: PAIN
     Dosage: AS NEEDED
  3. TRIAMITERENE [Concomitant]
     Indication: ARTHRITIS
  4. MULTI-VITAMIN [Concomitant]
     Indication: VITAMIN SUPPLEMENTATION
  5. BAYER ASA [Concomitant]
     Indication: PRODUCT USED FOR UNKNOWN INDICATION
     Dosage: DAILY
  6. OYSCO D [Concomitant]
     Indication: MINERAL SUPPLEMENTATION
  7. HUMIRA [Suspect]
     Indication: RHEUMATOID ARTHRITIS
     Dates: end: 20110522

REACTIONS (3)
  - MALAISE [None]
  - ARTHRALGIA [None]
  - JOINT STIFFNESS [None]
